FAERS Safety Report 26083686 (Version 2)
Quarter: 2025Q4

REPORT INFORMATION
  Report Type: Spontaneous
  Country: BR (occurrence: BR)
  Receive Date: 20251124
  Receipt Date: 20251205
  Transmission Date: 20260118
  Serious: Yes (Other)
  Sender: BAYER HEALTHCARE PHARMACEUTICALS INC.
  Company Number: BR-BAYER-2025A155160

PATIENT
  Age: 61 Year
  Sex: Male

DRUGS (1)
  1. ULTRAVIST [Suspect]
     Active Substance: IOPROMIDE
     Indication: Angiocardiogram
     Dosage: UNK, ONCE
     Dates: start: 20251111, end: 20251111

REACTIONS (12)
  - Unresponsive to stimuli [None]
  - Agitation [Recovered/Resolved]
  - Disorientation [Recovered/Resolved]
  - Blood pressure increased [None]
  - Nausea [Recovering/Resolving]
  - Dyspnoea [Recovered/Resolved]
  - Wheezing [Recovering/Resolving]
  - Headache [Recovered/Resolved]
  - Chest pain [Recovering/Resolving]
  - Rash [Recovering/Resolving]
  - Erythema [Recovering/Resolving]
  - Oxygen saturation decreased [Recovered/Resolved]

NARRATIVE: CASE EVENT DATE: 20251101
